FAERS Safety Report 9978550 (Version 1)
Quarter: 2014Q1

REPORT INFORMATION
  Report Type: Report from Study
  Country: US (occurrence: US)
  Receive Date: 20140306
  Receipt Date: 20140306
  Transmission Date: 20141002
  Serious: No
  Sender: FDA-Public Use
  Company Number: US-ABBVIE-13P-163-1173483-00

PATIENT
  Age: 51 Year
  Sex: Female

DRUGS (12)
  1. HUMIRA [Suspect]
     Indication: CROHN^S DISEASE
     Dates: start: 20131012, end: 20131012
  2. HUMIRA [Suspect]
     Dates: start: 20131026, end: 20131026
  3. HUMIRA [Suspect]
     Dates: start: 20131109, end: 20131109
  4. HUMIRA [Suspect]
  5. METFORMIN HCL [Concomitant]
     Indication: PRODUCT USED FOR UNKNOWN INDICATION
  6. GLIPIZIDE [Concomitant]
     Indication: PRODUCT USED FOR UNKNOWN INDICATION
  7. PRAMIPEXOLE [Concomitant]
     Indication: RESTLESS LEGS SYNDROME
  8. OMEPRAZOLE ER [Concomitant]
     Indication: PRODUCT USED FOR UNKNOWN INDICATION
  9. LORATIDINE [Concomitant]
     Indication: PRODUCT USED FOR UNKNOWN INDICATION
  10. IBUPROFEN [Concomitant]
     Indication: PRODUCT USED FOR UNKNOWN INDICATION
  11. LEVSIN [Concomitant]
     Indication: PRODUCT USED FOR UNKNOWN INDICATION
  12. LANTUS INSULIN [Concomitant]
     Indication: PRODUCT USED FOR UNKNOWN INDICATION
     Dosage: AT SUPPERTIME

REACTIONS (1)
  - Drug administration error [Not Recovered/Not Resolved]
